FAERS Safety Report 17191547 (Version 2)
Quarter: 2020Q1

REPORT INFORMATION
  Report Type: Report from Study
  Country: None (occurrence: DE)
  Receive Date: 20191223
  Receipt Date: 20200107
  Transmission Date: 20200409
  Serious: Yes (Other)
  Sender: FDA-Public Use
  Company Number: DE-ABBVIE-19K-062-3201183-00

PATIENT
  Age: 29 Year
  Sex: Female
  Weight: 115 kg

DRUGS (2)
  1. HUMIRA [Suspect]
     Active Substance: ADALIMUMAB
     Indication: UVEITIS
     Route: 058
     Dates: start: 20180904, end: 20190911
  2. HUMIRA [Suspect]
     Active Substance: ADALIMUMAB
     Indication: ANTIBODY TEST POSITIVE

REACTIONS (3)
  - Macular oedema [Recovered/Resolved with Sequelae]
  - Ocular hypertension [Recovered/Resolved]
  - Blindness [Recovered/Resolved with Sequelae]

NARRATIVE: CASE EVENT DATE: 20190121
